FAERS Safety Report 15781616 (Version 8)
Quarter: 2021Q4

REPORT INFORMATION
  Report Type: Spontaneous
  Country: US (occurrence: US)
  Receive Date: 20190102
  Receipt Date: 20211104
  Transmission Date: 20220303
  Serious: No
  Sender: FDA-Public Use
  Company Number: US-PFIZER INC-2017283178

PATIENT
  Age: 20 Year
  Sex: Male
  Weight: 111 kg

DRUGS (16)
  1. SOMAVERT [Suspect]
     Active Substance: PEGVISOMANT
     Indication: Acromegaly
     Dosage: 40 MG, 2X/DAY
     Route: 055
     Dates: start: 201111
  2. SOMAVERT [Suspect]
     Active Substance: PEGVISOMANT
     Indication: Pituitary tumour benign
     Dosage: 40 MG, DAILY
  3. SOMAVERT [Suspect]
     Active Substance: PEGVISOMANT
     Dosage: 80 MG, DAILY
     Dates: start: 201207
  4. SOMAVERT [Suspect]
     Active Substance: PEGVISOMANT
     Dosage: 20 MG, DAILY
     Dates: start: 2012
  5. SOMAVERT [Suspect]
     Active Substance: PEGVISOMANT
     Dosage: 40 MG, UNK
  6. SOMAVERT [Suspect]
     Active Substance: PEGVISOMANT
     Dosage: 80 MG, UNK
  7. SOMAVERT [Suspect]
     Active Substance: PEGVISOMANT
     Dosage: 40 MG, 2X/DAY
     Route: 058
     Dates: start: 2013
  8. SOMAVERT [Suspect]
     Active Substance: PEGVISOMANT
     Dosage: 80 MG, DAILY [4 BOTTLES OF 20MG A DAY]
  9. SOMAVERT [Suspect]
     Active Substance: PEGVISOMANT
     Dosage: 80 MG, DAILY (120 EACH)
     Dates: start: 20120806
  10. SOMAVERT [Suspect]
     Active Substance: PEGVISOMANT
     Dosage: 30 MG, DAILY
     Route: 058
     Dates: start: 20210422
  11. KEPPRA [Concomitant]
     Active Substance: LEVETIRACETAM
     Indication: Seizure
     Dosage: 500 MG, 2X/DAY
  12. KEPPRA [Concomitant]
     Active Substance: LEVETIRACETAM
     Indication: Epilepsy
  13. DEPO-TESTOSTERONE [Concomitant]
     Active Substance: TESTOSTERONE CYPIONATE
     Indication: Androgen deficiency
     Dosage: UNK
  14. CORTEF [Concomitant]
     Active Substance: HYDROCORTISONE
     Indication: Cortisol decreased
     Dosage: 10 MG, UNK
  15. METFORMIN [Concomitant]
     Active Substance: METFORMIN HYDROCHLORIDE
     Indication: Glucose tolerance impaired
     Dosage: UNK UNK, 1X/DAY
  16. SYNTHROID [Concomitant]
     Active Substance: LEVOTHYROXINE SODIUM
     Dosage: UNK

REACTIONS (8)
  - Off label use [Unknown]
  - Incorrect route of product administration [Unknown]
  - Product use issue [Unknown]
  - Intentional product misuse [Unknown]
  - Insulin-like growth factor increased [Unknown]
  - Lipohypertrophy [Unknown]
  - Vomiting [Unknown]
  - Nausea [Unknown]

NARRATIVE: CASE EVENT DATE: 20111101
